FAERS Safety Report 24634225 (Version 1)
Quarter: 2024Q4

REPORT INFORMATION
  Report Type: Spontaneous
  Country: US (occurrence: US)
  Receive Date: 20241119
  Receipt Date: 20241119
  Transmission Date: 20250115
  Serious: Yes (Hospitalization, Other)
  Sender: NOVO NORDISK
  Company Number: US-NOVOPROD-1317575

PATIENT
  Age: 56 Year
  Sex: Male

DRUGS (1)
  1. FIASP [Suspect]
     Active Substance: INSULIN ASPART
     Indication: Type 1 diabetes mellitus
     Dosage: DOSED ON SLIDING SCALE
     Route: 058
     Dates: start: 202404

REACTIONS (1)
  - Toe operation [Recovered/Resolved]

NARRATIVE: CASE EVENT DATE: 20241026
